FAERS Safety Report 24307440 (Version 2)
Quarter: 2024Q3

REPORT INFORMATION
  Report Type: Spontaneous
  Country: US (occurrence: US)
  Receive Date: 20240911
  Receipt Date: 20240926
  Transmission Date: 20241016
  Serious: Yes (Other)
  Sender: BAYER
  Company Number: US-BAYER-2024A129570

PATIENT
  Age: 54 Year
  Sex: Female

DRUGS (4)
  1. MIRENA [Suspect]
     Active Substance: LEVONORGESTREL
     Indication: Heavy menstrual bleeding
     Dosage: 20?G/DAY
     Route: 015
     Dates: start: 202206
  2. MIRENA [Suspect]
     Active Substance: LEVONORGESTREL
     Indication: Polymenorrhoea
  3. ZEJULA [Suspect]
     Active Substance: NIRAPARIB
  4. LYNPARZA [Concomitant]
     Active Substance: OLAPARIB

REACTIONS (12)
  - Thrombocytopenia [None]
  - Fatigue [None]
  - Anaemia [None]
  - White blood cell count decreased [None]
  - Bone pain [None]
  - Arthralgia [None]
  - Constipation [None]
  - Vaginal haemorrhage [None]
  - Abdominal discomfort [None]
  - Dyschezia [None]
  - Infrequent bowel movements [None]
  - Loss of personal independence in daily activities [None]
